FAERS Safety Report 4316154-1 (Version None)
Quarter: 2004Q1

REPORT INFORMATION
  Report Type: 
  Country: None (occurrence: None)
  Receive Date: 20040312
  Receipt Date: 20031017
  Transmission Date: 20041129
  Serious: Yes (Life-Threatening, Hospitalization)
  Sender: FDA-Public Use
  Company Number: PHBS2003CH11427

PATIENT
  Sex: Female

DRUGS (5)
  1. TEGRETOL [Suspect]
     Indication: PAIN IN EXTREMITY
     Route: 048
     Dates: start: 20030813, end: 20030907
  2. NEURONTIN [Suspect]
     Route: 065
     Dates: start: 20030820, end: 20030907
  3. HUMINSULIN BASAL [Concomitant]
     Route: 065
  4. INSULIN LISPRO [Concomitant]
     Route: 065
  5. DAFALGAN [Concomitant]
     Route: 065

REACTIONS (21)
  - COAGULOPATHY [None]
  - DIABETIC NEUROPATHY [None]
  - EOSINOPHILIA [None]
  - ERYTHEMA [None]
  - EXANTHEM [None]
  - HAEMATOMA [None]
  - HEPATIC ENZYME INCREASED [None]
  - HEPATOCELLULAR DAMAGE [None]
  - HYPERSENSITIVITY [None]
  - HYPONATRAEMIA [None]
  - LEUKOCYTOSIS [None]
  - LYMPHOCYTE TRANSFORMATION TEST POSITIVE [None]
  - PAIN [None]
  - PETECHIAE [None]
  - POLYCYTHAEMIA [None]
  - PYREXIA [None]
  - RASH MACULO-PAPULAR [None]
  - SHIFT TO THE LEFT [None]
  - SINUS TACHYCARDIA [None]
  - SKIN OEDEMA [None]
  - SKIN TEST POSITIVE [None]
